FAERS Safety Report 14169139 (Version 1)
Quarter: 2017Q4

REPORT INFORMATION
  Report Type: Spontaneous
  Country: US (occurrence: US)
  Receive Date: 20171108
  Receipt Date: 20171108
  Transmission Date: 20180321
  Serious: Yes (Hospitalization)
  Sender: FDA-Public Use
  Company Number: US-OREXIGEN THERAPEUTICS, INC.-2033514

PATIENT
  Age: 58 Year
  Sex: Female
  Weight: 86.17 kg

DRUGS (15)
  1. CONTRAVE [Suspect]
     Active Substance: BUPROPION HYDROCHLORIDE\NALTREXONE HYDROCHLORIDE
     Route: 048
     Dates: start: 20170427, end: 20170503
  2. PROTONIX /00661201/ [Concomitant]
     Active Substance: OMEPRAZOLE
     Route: 048
     Dates: start: 2011
  3. VITAMIN B3 [Concomitant]
     Active Substance: NIACIN
     Route: 048
     Dates: start: 2012
  4. REPATHA [Concomitant]
     Active Substance: EVOLOCUMAB
     Route: 051
     Dates: start: 20170522
  5. CONTRAVE [Suspect]
     Active Substance: BUPROPION HYDROCHLORIDE\NALTREXONE HYDROCHLORIDE
     Indication: WEIGHT DECREASED
     Route: 065
     Dates: start: 20170413
  6. TURMERIC /01079602/ [Concomitant]
     Active Substance: HERBALS\TURMERIC
     Route: 048
     Dates: start: 2016
  7. IBUPROFEN. [Concomitant]
     Active Substance: IBUPROFEN
     Route: 065
  8. CONTRAVE [Suspect]
     Active Substance: BUPROPION HYDROCHLORIDE\NALTREXONE HYDROCHLORIDE
     Route: 048
     Dates: start: 20170420, end: 20170426
  9. CONTRAVE [Suspect]
     Active Substance: BUPROPION HYDROCHLORIDE\NALTREXONE HYDROCHLORIDE
     Route: 048
     Dates: start: 20170504, end: 20170924
  10. BENTYL [Concomitant]
     Active Substance: DICYCLOMINE HYDROCHLORIDE
     Route: 048
     Dates: start: 2011
  11. OMEGA 3/01333901/ [Concomitant]
     Route: 048
     Dates: start: 2012
  12. IPRATROPIUM BROMIDE. [Concomitant]
     Active Substance: IPRATROPIUM BROMIDE
     Route: 045
     Dates: start: 2012
  13. CARDIZEM [Concomitant]
     Active Substance: DILTIAZEM HYDROCHLORIDE
     Route: 065
     Dates: start: 20170925
  14. ATENOLOL. [Concomitant]
     Active Substance: ATENOLOL
     Route: 048
     Dates: start: 2011
  15. LEVOTHYROXINE. [Concomitant]
     Active Substance: LEVOTHYROXINE
     Route: 048

REACTIONS (3)
  - Chest pain [Recovered/Resolved]
  - Heart rate increased [Recovered/Resolved]
  - Atrial fibrillation [Recovered/Resolved]

NARRATIVE: CASE EVENT DATE: 20170925
